FAERS Safety Report 24356345 (Version 1)
Quarter: 2024Q3

REPORT INFORMATION
  Report Type: Spontaneous
  Country: BE (occurrence: BE)
  Receive Date: 20240924
  Receipt Date: 20240924
  Transmission Date: 20241017
  Serious: Yes (Death, Hospitalization)
  Sender: STRIDES
  Company Number: BE-STRIDES ARCOLAB LIMITED-2024SP012221

PATIENT
  Age: 66 Year
  Sex: Female

DRUGS (9)
  1. POTASSIUM CHLORIDE [Suspect]
     Active Substance: POTASSIUM CHLORIDE
     Indication: Septic shock
     Dosage: 40 MILLIEQUIVALENT
     Route: 065
  2. SODIUM BICARBONATE [Suspect]
     Active Substance: SODIUM BICARBONATE
     Indication: Metabolic acidosis
     Dosage: 100 MILLILITER
     Route: 065
  3. SODIUM BICARBONATE [Suspect]
     Active Substance: SODIUM BICARBONATE
     Dosage: 700 MILLILITER
     Route: 065
  4. PANTOPRAZOLE [Suspect]
     Active Substance: PANTOPRAZOLE
     Indication: Septic shock
     Dosage: 80 MILLIGRAM;BOLUS
     Route: 065
  5. PANTOPRAZOLE [Suspect]
     Active Substance: PANTOPRAZOLE
     Dosage: 8 MILLIGRAM, EVERY HOUR;CONTINUOUS INFUSION
     Route: 065
  6. NOREPINEPHRINE [Suspect]
     Active Substance: NOREPINEPHRINE\NOREPINEPHRINE BITARTRATE
     Indication: Septic shock
     Dosage: UNK
     Route: 065
  7. CEFUROXIME [Suspect]
     Active Substance: CEFUROXIME
     Indication: Septic shock
     Dosage: 1.5 GRAM
     Route: 065
  8. PROPOFOL [Suspect]
     Active Substance: PROPOFOL
     Indication: Septic shock
     Dosage: 140 MILLIGRAM, EVERY HOUR
     Route: 065
  9. SULFURIC ACID [Suspect]
     Active Substance: SULFURIC ACID
     Indication: Product used for unknown indication
     Dosage: UNK
     Route: 048

REACTIONS (3)
  - Death [Fatal]
  - Condition aggravated [Unknown]
  - Drug ineffective for unapproved indication [Unknown]
